FAERS Safety Report 5319537-6 (Version None)
Quarter: 2007Q2

REPORT INFORMATION
  Report Type: 
  Country: None (occurrence: None)
  Receive Date: 20070508
  Receipt Date: 20070426
  Transmission Date: 20071010
  Serious: Yes (Other)
  Sender: FDA-Public Use
  Company Number: US-PFIZER INC-2007034637

PATIENT
  Sex: Female
  Weight: 53.636 kg

DRUGS (6)
  1. CHANTIX [Suspect]
     Indication: SMOKING CESSATION THERAPY
  2. CHANTIX [Suspect]
  3. ZYRTEC [Suspect]
  4. ACETYLSALICYLIC ACID SRT [Concomitant]
  5. PRAVACHOL [Concomitant]
  6. PROTONIX [Concomitant]

REACTIONS (9)
  - APPENDICITIS PERFORATED [None]
  - ASTHMA [None]
  - DYSGEUSIA [None]
  - HYPOGLYCAEMIA [None]
  - LUNG NEOPLASM MALIGNANT [None]
  - MALAISE [None]
  - NAUSEA [None]
  - RHINORRHOEA [None]
  - VOMITING [None]
